FAERS Safety Report 7829569-1 (Version None)
Quarter: 2011Q4

REPORT INFORMATION
  Report Type: 
  Country: None (occurrence: None)
  Receive Date: 20111020
  Receipt Date: 20111012
  Transmission Date: 20120403
  Serious: Yes (Hospitalization)
  Sender: FDA-Public Use
  Company Number: US-ASTRAZENECA-2011SE61308

PATIENT
  Age: 60 Year
  Sex: Male
  Weight: 149.7 kg

DRUGS (2)
  1. LITHIUM CITRATE [Concomitant]
  2. SEROQUEL [Suspect]
     Indication: BIPOLAR DISORDER
     Dosage: 200 MG 4 TABLETS EVERYDAY
     Route: 048

REACTIONS (1)
  - DIABETIC FOOT [None]
